FAERS Safety Report 22285708 (Version 2)
Quarter: 2023Q2

REPORT INFORMATION
  Report Type: Spontaneous
  Country: AU (occurrence: AU)
  Receive Date: 20230504
  Receipt Date: 20230508
  Transmission Date: 20230722
  Serious: No
  Sender: FDA-Public Use
  Company Number: AU-ABBVIE-4751350

PATIENT
  Age: 25 Year

DRUGS (16)
  1. ADALIMUMAB [Suspect]
     Active Substance: ADALIMUMAB
     Indication: Product used for unknown indication
     Route: 058
  2. RINVOQ [Suspect]
     Active Substance: UPADACITINIB
     Indication: Rheumatoid arthritis
     Route: 048
     Dates: start: 202010
  3. SALT [Concomitant]
     Active Substance: SODIUM CHLORIDE
     Indication: Product used for unknown indication
  4. EPIPEN [Concomitant]
     Active Substance: EPINEPHRINE
     Indication: Product used for unknown indication
     Route: 030
  5. SODIUM CHLORIDE [Concomitant]
     Active Substance: SODIUM CHLORIDE
     Indication: Product used for unknown indication
     Route: 042
  6. CANNABIDIOL [Concomitant]
     Active Substance: CANNABIDIOL
     Indication: Product used for unknown indication
  7. FOLIC ACID [Concomitant]
     Active Substance: FOLIC ACID
     Indication: Product used for unknown indication
  8. MESALAMINE [Concomitant]
     Active Substance: MESALAMINE
     Indication: Product used for unknown indication
     Route: 048
  9. ENDEP [Concomitant]
     Active Substance: AMITRIPTYLINE HYDROCHLORIDE
     Indication: Product used for unknown indication
  10. CETIRIZINE [Concomitant]
     Active Substance: CETIRIZINE HYDROCHLORIDE
     Indication: Eczema
  11. IVABRADINE [Concomitant]
     Active Substance: IVABRADINE
     Indication: Product used for unknown indication
  12. PANTOPRAZOLE [Concomitant]
     Active Substance: PANTOPRAZOLE
     Indication: Product used for unknown indication
  13. BUTYLSCOPOLAMINE BROMIDE [Concomitant]
     Active Substance: BUTYLSCOPOLAMINE BROMIDE
     Indication: Product used for unknown indication
  14. VITAMIN D [Concomitant]
     Active Substance: VITAMIN D NOS
     Indication: Product used for unknown indication
  15. PALEXIA [Concomitant]
     Active Substance: TAPENTADOL HYDROCHLORIDE
     Indication: Product used for unknown indication
  16. TRAMADOL [Concomitant]
     Active Substance: TRAMADOL
     Indication: Product used for unknown indication

REACTIONS (19)
  - Muscle spasms [Unknown]
  - Vomiting [Not Recovered/Not Resolved]
  - Breast ulceration [Recovered/Resolved]
  - Dyspnoea [Unknown]
  - Haematochezia [Unknown]
  - Pain [Unknown]
  - Urticaria [Unknown]
  - Cushingoid [Unknown]
  - Post inflammatory pigmentation change [Unknown]
  - Injection site swelling [Unknown]
  - Fibromyalgia [Unknown]
  - Arthritis [Unknown]
  - Skin ulcer [Recovered/Resolved]
  - Disability [Unknown]
  - Diarrhoea [Unknown]
  - Nausea [Unknown]
  - Ulcer [Unknown]
  - Haemorrhage [Unknown]
  - Multimorbidity [Unknown]

NARRATIVE: CASE EVENT DATE: 20220201
